FAERS Safety Report 22768771 (Version 3)
Quarter: 2024Q2

REPORT INFORMATION
  Report Type: Spontaneous
  Country: ES (occurrence: ES)
  Receive Date: 20230731
  Receipt Date: 20240430
  Transmission Date: 20240716
  Serious: Yes (Other)
  Sender: FDA-Public Use
  Company Number: ES-OTSUKA-2023_017927

PATIENT
  Age: 27 Year
  Sex: Female

DRUGS (14)
  1. ARIPIPRAZOLE [Suspect]
     Active Substance: ARIPIPRAZOLE
     Indication: Schizophrenia
     Dosage: 20 MILLIGRAM, QD
     Route: 048
  2. ARIPIPRAZOLE [Suspect]
     Active Substance: ARIPIPRAZOLE
     Indication: Substance use
  3. ABILIFY MAINTENA [Suspect]
     Active Substance: ARIPIPRAZOLE
     Indication: Schizophrenia
     Dosage: 800MG(TWO INJECTIONS OF ABILIFY MAINTENA 400 MG)
     Route: 065
  4. ABILIFY MAINTENA [Suspect]
     Active Substance: ARIPIPRAZOLE
     Indication: Substance use
     Dosage: 300 MILLIGRAM, Q28D (EVERY 4 WEEKS)
     Route: 065
  5. BIPERIDEN [Concomitant]
     Active Substance: BIPERIDEN
     Indication: Product used for unknown indication
     Dosage: 4 MILLIGRAM, QD
     Route: 065
  6. CLONAZEPAM [Concomitant]
     Active Substance: CLONAZEPAM
     Indication: Product used for unknown indication
     Dosage: 0.5 MILLIGRAM, QD
     Route: 065
  7. LURASIDONE [Concomitant]
     Active Substance: LURASIDONE
     Indication: Product used for unknown indication
     Dosage: 37 MILLIGRAM
     Route: 065
  8. LORAZEPAM [Concomitant]
     Active Substance: LORAZEPAM
     Indication: Product used for unknown indication
     Dosage: AS NECESSARY (UPON NEED)
     Route: 065
  9. QUETIAPINE [Concomitant]
     Active Substance: QUETIAPINE
     Indication: Product used for unknown indication
     Dosage: 200 MILLIGRAM, QD
     Route: 065
  10. QUETIAPINE [Concomitant]
     Active Substance: QUETIAPINE
     Dosage: 100 MILLIGRAM, QD
     Route: 065
  11. ESLICARBAZEPINE [Concomitant]
     Active Substance: ESLICARBAZEPINE
     Indication: Product used for unknown indication
     Dosage: 800 MILLIGRAM, QD
     Route: 065
  12. OLANZAPINE [Concomitant]
     Active Substance: OLANZAPINE
     Indication: Product used for unknown indication
     Dosage: 5 MILLIGRAM
     Route: 065
  13. SERTRALINE [Concomitant]
     Active Substance: SERTRALINE HYDROCHLORIDE
     Indication: Product used for unknown indication
     Dosage: 50 MILLIGRAM
     Route: 065
  14. FLUVOXAMINE [Concomitant]
     Active Substance: FLUVOXAMINE
     Indication: Product used for unknown indication
     Dosage: 100 MILLIGRAM, BID (EVERY 12 HOURS)
     Route: 065

REACTIONS (14)
  - Psychotic symptom [Unknown]
  - Dystonia [Unknown]
  - Therapy cessation [Unknown]
  - Crying [Unknown]
  - Feeling abnormal [Unknown]
  - Asthenia [Unknown]
  - Musculoskeletal stiffness [Not Recovered/Not Resolved]
  - Akathisia [Unknown]
  - Extrapyramidal disorder [Unknown]
  - Dry mouth [Unknown]
  - Drug ineffective for unapproved indication [Unknown]
  - Product use in unapproved indication [Unknown]
  - Drug ineffective [Unknown]
  - Social problem [Unknown]
